FAERS Safety Report 20315628 (Version 2)
Quarter: 2022Q1

REPORT INFORMATION
  Report Type: Spontaneous
  Country: AT (occurrence: AT)
  Receive Date: 20220110
  Receipt Date: 20220325
  Transmission Date: 20220423
  Serious: Yes (Death, Hospitalization, Disabling, Other)
  Sender: FDA-Public Use
  Company Number: AT-LUNDBECK-DKLU1110029

PATIENT
  Age: 70 Year
  Sex: Female

DRUGS (16)
  1. HALDOL [Suspect]
     Active Substance: HALOPERIDOL
     Indication: Product used for unknown indication
     Route: 065
  2. RISPERDAL [Suspect]
     Active Substance: RISPERIDONE
     Indication: Psychotic disorder
     Route: 065
     Dates: start: 2000, end: 2004
  3. RISPERDAL [Suspect]
     Active Substance: RISPERIDONE
     Route: 065
     Dates: start: 2000, end: 20010116
  4. RISPERDAL [Suspect]
     Active Substance: RISPERIDONE
     Route: 065
     Dates: start: 20010117, end: 2004
  5. SERTINDOLE [Suspect]
     Active Substance: SERTINDOLE
     Indication: Product used for unknown indication
     Dosage: 8 MILLIGRAM
     Route: 048
     Dates: start: 20071010, end: 20071010
  6. SERTINDOLE [Suspect]
     Active Substance: SERTINDOLE
     Route: 048
     Dates: start: 2004, end: 2008
  7. SERTINDOLE [Suspect]
     Active Substance: SERTINDOLE
     Dosage: 4 MILLIGRAM
     Route: 048
  8. SERTINDOLE [Suspect]
     Active Substance: SERTINDOLE
     Route: 048
     Dates: start: 20040402
  9. CETYLPYRIDINIUM CHLORIDE [Suspect]
     Active Substance: CETYLPYRIDINIUM CHLORIDE
     Indication: Product used for unknown indication
     Route: 065
  10. TIAPRIDE HYDROCHLORIDE [Suspect]
     Active Substance: TIAPRIDE HYDROCHLORIDE
     Indication: Product used for unknown indication
     Dosage: 200 MG AS ADD-ON MEDICATION
     Route: 065
     Dates: start: 20040505, end: 2008
  11. CLORAZEPATE DIPOTASSIUM [Suspect]
     Active Substance: CLORAZEPATE DIPOTASSIUM
     Indication: Product used for unknown indication
     Dosage: 30 MG
     Route: 065
     Dates: start: 2004, end: 2008
  12. SERTINDOLE [Suspect]
     Active Substance: SERTINDOLE
     Indication: Product used for unknown indication
     Route: 048
     Dates: start: 20040402
  13. ZIPRASIDONE [Concomitant]
     Active Substance: ZIPRASIDONE
     Indication: Schizophrenia
     Route: 065
  14. EUTHYROX [Concomitant]
     Active Substance: LEVOTHYROXINE SODIUM
     Indication: Hypothyroidism
     Route: 065
  15. DIHYDROERGOTAMINE [Concomitant]
     Active Substance: DIHYDROERGOTAMINE
     Indication: Migraine
     Route: 065
  16. ZELDOX [Concomitant]
     Active Substance: ZIPRASIDONE
     Indication: Schizophrenia
     Route: 065
     Dates: end: 2004

REACTIONS (17)
  - Death [Fatal]
  - Dementia [Not Recovered/Not Resolved]
  - Choking [Unknown]
  - Pneumonia [Unknown]
  - Parenteral nutrition [Not Recovered/Not Resolved]
  - Bedridden [Unknown]
  - Living in residential institution [Unknown]
  - Speech disorder [Not Recovered/Not Resolved]
  - Sleep disorder [Unknown]
  - Chorea [Unknown]
  - Weight increased [Not Recovered/Not Resolved]
  - Dyskinesia [Not Recovered/Not Resolved]
  - Hypokinesia [Not Recovered/Not Resolved]
  - Incontinence [Unknown]
  - Weight decreased [Unknown]
  - Gait inability [Unknown]
  - Bedridden [Unknown]

NARRATIVE: CASE EVENT DATE: 20060101
